FAERS Safety Report 10071550 (Version 1)
Quarter: 2014Q2

REPORT INFORMATION
  Report Type: Spontaneous
  Country: FR (occurrence: FR)
  Receive Date: 20140410
  Receipt Date: 20140410
  Transmission Date: 20141212
  Serious: Yes (Life-Threatening)
  Sender: FDA-Public Use
  Company Number: FR-009507513-1404FRA002401

PATIENT
  Age: 73 Year
  Sex: Male

DRUGS (5)
  1. ESMERON [Suspect]
     Dosage: 50 MG, ONCE
     Route: 042
     Dates: start: 20140304, end: 20140304
  2. PROPOFOL [Suspect]
     Dosage: 200 MG, ONCE
     Route: 042
     Dates: start: 20140304, end: 20140304
  3. SUFENTANIL [Suspect]
     Dosage: 15 MICROGRAM, ONCE
     Route: 042
     Dates: start: 20140304, end: 20140304
  4. RAPIFEN [Suspect]
     Dosage: 1500 MICROGRAM, ONCE
     Route: 042
     Dates: start: 20140304, end: 20140304
  5. AUGMENTIN [Suspect]
     Dosage: UNK
     Route: 042
     Dates: start: 20140304, end: 20140304

REACTIONS (2)
  - Laryngeal oedema [Recovered/Resolved]
  - Circulatory collapse [Recovered/Resolved]
